FAERS Safety Report 7719578-5 (Version None)
Quarter: 2011Q3

REPORT INFORMATION
  Report Type: 
  Country: None (occurrence: None)
  Receive Date: 20110830
  Receipt Date: 20110823
  Transmission Date: 20111222
  Serious: Yes (Other)
  Sender: FDA-Public Use
  Company Number: GB-ABBOTT-11P-167-0848878-00

PATIENT
  Sex: Male

DRUGS (1)
  1. HUMIRA [Suspect]
     Indication: PSORIATIC ARTHROPATHY
     Route: 058
     Dates: start: 20110601, end: 20110628

REACTIONS (14)
  - NIGHT BLINDNESS [None]
  - DIARRHOEA [None]
  - SLEEP DISORDER [None]
  - OROPHARYNGEAL PAIN [None]
  - FATIGUE [None]
  - EPISTAXIS [None]
  - NASAL DISCOMFORT [None]
  - DIZZINESS [None]
  - ARTHRALGIA [None]
  - NASAL DRYNESS [None]
  - HEADACHE [None]
  - DRUG INEFFECTIVE [None]
  - SALIVA DISCOLOURATION [None]
  - SENSORY DISTURBANCE [None]
